FAERS Safety Report 8702674 (Version 2)
Quarter: 2013Q1

REPORT INFORMATION
  Report Type: Report from Study
  Country: JP (occurrence: JP)
  Receive Date: 20120803
  Receipt Date: 20130213
  Transmission Date: 20140127
  Serious: Yes (Other)
  Sender: FDA-Public Use
  Company Number: JP-009507513-2012SP026205

PATIENT
  Age: 70 Year
  Sex: Female
  Weight: 45 kg

DRUGS (15)
  1. REBETOL [Suspect]
     Indication: CHRONIC HEPATITIS C
     Dosage: 400 MG, QD
     Route: 048
     Dates: start: 20120117, end: 20120226
  2. REBETOL [Suspect]
     Dosage: 200 MG, QD
     Route: 048
     Dates: start: 20120227, end: 20120513
  3. REBETOL [Suspect]
     Dosage: 400 MG, ONCE
     Route: 048
     Dates: start: 20120514, end: 20120625
  4. PEGINTRON [Suspect]
     Indication: CHRONIC HEPATITIS C
     Dosage: 1.5MCG/KG/WEEK
     Route: 058
     Dates: start: 20120117, end: 20120625
  5. TELAVIC [Suspect]
     Indication: CHRONIC HEPATITIS C
     Route: 048
     Dates: start: 20120117, end: 20120318
  6. TELAVIC [Suspect]
     Dosage: 1000 MG, ONCE
     Route: 048
     Dates: start: 20120319, end: 20120408
  7. MICARDIS [Concomitant]
     Indication: HYPERTENSION
     Dosage: 40 MG, QD
     Route: 048
  8. DEPAS [Concomitant]
     Indication: INSOMNIA
     Dosage: 1 MG, QD
     Route: 048
  9. LIVALO [Concomitant]
     Indication: HYPERLIPIDAEMIA
     Dosage: 2 MG, ONCE
     Route: 048
  10. FEROTYM [Concomitant]
     Indication: IRON DEFICIENCY ANAEMIA
     Dosage: 100 MG, QD
     Route: 048
  11. CLARITIN REDITABS [Concomitant]
     Indication: PROPHYLAXIS
     Dosage: 10 MG, QD
     Route: 048
  12. EPADEL [Concomitant]
     Indication: HYPERLIPIDAEMIA
     Dosage: 1800 MG, QD
     Route: 048
  13. DIHYDROERGOCRISTINE MESYLATE [Concomitant]
     Indication: INSOMNIA
     Dosage: 2 MG, QD
     Route: 048
  14. EPADEL S [Concomitant]
     Indication: HYPERLIPIDAEMIA
     Route: 048
  15. EURODIN (DIHYDROERGOCRISTINE MESYLATE) [Concomitant]
     Indication: INSOMNIA
     Dosage: 2 MG, QD
     Route: 048

REACTIONS (3)
  - Anaemia [Not Recovered/Not Resolved]
  - Hyperuricaemia [Recovering/Resolving]
  - Platelet count decreased [None]
